FAERS Safety Report 6427874-7 (Version None)
Quarter: 2009Q4

REPORT INFORMATION
  Report Type: 
  Country: None (occurrence: None)
  Receive Date: 20091105
  Receipt Date: 20091028
  Transmission Date: 20100525
  Serious: Yes (Other)
  Sender: FDA-Public Use
  Company Number: US-JNJFOC-20091100193

PATIENT
  Age: 91 Year
  Sex: Male
  Weight: 83.92 kg

DRUGS (4)
  1. TYLENOL (CAPLET) [Suspect]
     Route: 048
  2. TYLENOL (CAPLET) [Suspect]
     Indication: ARTHRITIS
     Route: 048
  3. NOVOLOG [Concomitant]
     Indication: DIABETES MELLITUS
     Dosage: SLIDING SCALE 5-10 UNITS 4 TIMES A DAY AS NEEDED
  4. LANTUS [Concomitant]
     Indication: DIABETES MELLITUS

REACTIONS (1)
  - RECTAL HAEMORRHAGE [None]
